FAERS Safety Report 18307276 (Version 1)
Quarter: 2020Q3

REPORT INFORMATION
  Report Type: Spontaneous
  Country: US (occurrence: US)
  Receive Date: 20200924
  Receipt Date: 20200924
  Transmission Date: 20201103
  Serious: No
  Sender: FDA-Public Use
  Company Number: None

PATIENT
  Age: 38 Year
  Sex: Male
  Weight: 69.75 kg

DRUGS (1)
  1. AUGMENTIN [Suspect]
     Active Substance: AMOXICILLIN\CLAVULANATE POTASSIUM
     Indication: SINUSITIS

REACTIONS (8)
  - Eye swelling [None]
  - Dyspnoea [None]
  - Hyperkeratosis [None]
  - Peripheral swelling [None]
  - Urticaria [None]
  - Pruritus [None]
  - Anaphylactic reaction [None]
  - Speech disorder [None]

NARRATIVE: CASE EVENT DATE: 20080901
